FAERS Safety Report 5504326-X (Version None)
Quarter: 2007Q4

REPORT INFORMATION
  Report Type: 
  Country: None (occurrence: None)
  Receive Date: 20071030
  Receipt Date: 20070917
  Transmission Date: 20080405
  Serious: No
  Sender: FDA-Public Use
  Company Number: 267559

PATIENT
  Age: 68 Year
  Sex: Female

DRUGS (5)
  1. LEVEMIR [Suspect]
     Indication: TYPE 2 DIABETES MELLITUS
     Dosage: 50 LU, QD, SUBCUTANEOUS
     Route: 058
  2. DIOVAN [Concomitant]
  3. NORVASC [Concomitant]
  4. TOPROL-XL [Concomitant]
  5. GLUCOTROL [Concomitant]

REACTIONS (3)
  - FOOT DEFORMITY [None]
  - MUSCLE SPASMS [None]
  - MUSCULOSKELETAL PAIN [None]
